FAERS Safety Report 20827071 (Version 3)
Quarter: 2022Q3

REPORT INFORMATION
  Report Type: Report from Study
  Country: US (occurrence: US)
  Receive Date: 20220513
  Receipt Date: 20220727
  Transmission Date: 20221027
  Serious: Yes (Other)
  Sender: FDA-Public Use
  Company Number: US-NOVARTISPH-NVSC2022US109698

PATIENT
  Age: 50 Year
  Sex: Male

DRUGS (1)
  1. ENTRESTO [Suspect]
     Active Substance: SACUBITRIL\VALSARTAN
     Indication: Product used for unknown indication
     Dosage: 50 MG, BID (24/26 MG)
     Route: 048
     Dates: start: 202108

REACTIONS (11)
  - Cardiac failure [Unknown]
  - General physical health deterioration [Unknown]
  - Weight increased [Unknown]
  - Oedema [Recovered/Resolved]
  - Amnesia [Unknown]
  - Visual impairment [Unknown]
  - Ocular discomfort [Unknown]
  - Hypotension [Recovering/Resolving]
  - Dizziness [Unknown]
  - Concomitant disease aggravated [Unknown]
  - Product dose omission issue [Unknown]

NARRATIVE: CASE EVENT DATE: 20220510
